FAERS Safety Report 10235663 (Version 2)
Quarter: 2014Q3

REPORT INFORMATION
  Report Type: Spontaneous
  Country: DE (occurrence: DE)
  Receive Date: 20140613
  Receipt Date: 20140704
  Transmission Date: 20150326
  Serious: Yes (Hospitalization, Other)
  Sender: FDA-Public Use
  Company Number: DE-009507513-1406DEU002685

PATIENT
  Age: 36 Year
  Sex: Female

DRUGS (2)
  1. IMPLANON [Suspect]
     Active Substance: ETONOGESTREL
     Indication: CONTRACEPTION
     Dosage: ROD
     Route: 058
     Dates: start: 20130306, end: 20140616
  2. IMPLANON [Suspect]
     Active Substance: ETONOGESTREL
     Dosage: PATIENT^S FIRST IMPLANT
     Dates: start: 20100315, end: 201301

REACTIONS (7)
  - Orthostatic intolerance [Recovered/Resolved]
  - Abortion missed [Recovered/Resolved]
  - Vaginal haemorrhage [Recovered/Resolved]
  - Menorrhagia [Recovered/Resolved]
  - Dizziness [Recovered/Resolved]
  - Unintended pregnancy [Recovered/Resolved]
  - Uterine dilation and curettage [Recovered/Resolved]

NARRATIVE: CASE EVENT DATE: 201303
